FAERS Safety Report 6189594-6 (Version None)
Quarter: 2009Q2

REPORT INFORMATION
  Report Type: 
  Country: None (occurrence: None)
  Receive Date: 20090514
  Receipt Date: 20090508
  Transmission Date: 20091009
  Serious: Yes (Death, Life-Threatening, Hospitalization, Other)
  Sender: FDA-Public Use
  Company Number: US-CELGENEUS-163-20785-09011301

PATIENT
  Sex: Male

DRUGS (16)
  1. THALOMID [Suspect]
     Indication: MULTIPLE MYELOMA
     Route: 048
     Dates: start: 20090106
  2. THALOMID [Suspect]
     Route: 048
     Dates: start: 20080726, end: 20090101
  3. CHLORHEXIDINE GLUCONATE [Concomitant]
     Indication: DRUG USE FOR UNKNOWN INDICATION
     Route: 048
  4. FUROSEMIDE [Concomitant]
     Indication: DRUG USE FOR UNKNOWN INDICATION
     Route: 065
  5. INSULIN [Concomitant]
     Indication: DRUG USE FOR UNKNOWN INDICATION
     Route: 065
  6. PANTOPRAZOLE SODIUM [Concomitant]
     Indication: DRUG USE FOR UNKNOWN INDICATION
     Route: 065
  7. IMMUNE GLOBULIN INTRAVENOUS (HUMAN) [Concomitant]
     Indication: DRUG USE FOR UNKNOWN INDICATION
     Route: 065
     Dates: start: 20090123
  8. DECADRON [Concomitant]
     Indication: MULTIPLE MYELOMA
     Route: 065
     Dates: start: 20080701
  9. AVELOX [Concomitant]
     Indication: DRUG USE FOR UNKNOWN INDICATION
     Route: 065
     Dates: start: 20090109, end: 20090114
  10. ZOSYN [Concomitant]
     Indication: DRUG USE FOR UNKNOWN INDICATION
     Route: 065
     Dates: start: 20090109, end: 20090114
  11. LACTULOSE [Concomitant]
     Route: 065
  12. PROCRIT [Concomitant]
     Indication: DRUG USE FOR UNKNOWN INDICATION
     Route: 065
  13. DOXAZOSIN MESYLATE [Concomitant]
     Indication: DRUG USE FOR UNKNOWN INDICATION
     Route: 065
  14. ALLOPURINOL [Concomitant]
     Route: 065
  15. HYDRALAZINE HCL [Concomitant]
     Indication: BLOOD PRESSURE
     Route: 065
  16. EPOGEN [Concomitant]
     Route: 065

REACTIONS (11)
  - BLOOD COUNT ABNORMAL [None]
  - HAEMOTHORAX [None]
  - HEPATIC CIRRHOSIS [None]
  - HEPATIC FAILURE [None]
  - HYPERCALCAEMIA [None]
  - MALIGNANT PLEURAL EFFUSION [None]
  - MULTIPLE MYELOMA [None]
  - PNEUMONIA [None]
  - RENAL FAILURE ACUTE [None]
  - RESPIRATORY FAILURE [None]
  - STAPHYLOCOCCAL SEPSIS [None]
